FAERS Safety Report 8010374-0 (Version None)
Quarter: 2011Q4

REPORT INFORMATION
  Report Type: 
  Country: None (occurrence: None)
  Receive Date: 20111228
  Receipt Date: 20111221
  Transmission Date: 20120403
  Serious: Yes (Death, Hospitalization, Other)
  Sender: FDA-Public Use
  Company Number: US-ASTELLAS-2011US008183

PATIENT
  Age: 66 Year
  Sex: Male
  Weight: 44 kg

DRUGS (2)
  1. ERLOTINIB HYDROCHLORIDE [Suspect]
     Indication: PANCREATIC CARCINOMA
     Dosage: 150 MG, Q3W
     Route: 048
     Dates: start: 20111107
  2. GEMCITABINE [Suspect]
     Indication: PANCREATIC CARCINOMA
     Dosage: 1000 MG/M2, Q2W
     Route: 042
     Dates: start: 20111025

REACTIONS (7)
  - ASPIRATION [None]
  - WHITE BLOOD CELL COUNT INCREASED [None]
  - INCORRECT DOSE ADMINISTERED [None]
  - VOMITING [None]
  - NEOPLASM MALIGNANT [None]
  - INAPPROPRIATE SCHEDULE OF DRUG ADMINISTRATION [None]
  - FAILURE TO THRIVE [None]
